FAERS Safety Report 7386249-7 (Version None)
Quarter: 2011Q1

REPORT INFORMATION
  Report Type: 
  Country: None (occurrence: None)
  Receive Date: 20110329
  Receipt Date: 20110329
  Transmission Date: 20110831
  Serious: Yes (Hospitalization, Other)
  Sender: FDA-Public Use
  Company Number: None

PATIENT
  Age: 55 Year
  Sex: Male
  Weight: 108.8633 kg

DRUGS (1)
  1. VENTOLIN [Suspect]
     Indication: ASTHMA
     Dosage: 1 TO 2 PUFFS 4 TO 6 HOURS INHAL
     Route: 055
     Dates: start: 20091120, end: 20100315

REACTIONS (9)
  - CHEST PAIN [None]
  - TINNITUS [None]
  - ASTHMA [None]
  - DIZZINESS [None]
  - TUNNEL VISION [None]
  - HEADACHE [None]
  - HEART RATE INCREASED [None]
  - DRUG INEFFECTIVE [None]
  - DISORIENTATION [None]
